FAERS Safety Report 13963344 (Version 1)
Quarter: 2017Q3

REPORT INFORMATION
  Report Type: Report from Study
  Country: NL (occurrence: NL)
  Receive Date: 20170913
  Receipt Date: 20170913
  Transmission Date: 20171128
  Serious: Yes (Death)
  Sender: FDA-Public Use
  Company Number: NL-ROCHE-1992867

PATIENT

DRUGS (6)
  1. ALTEPLASE. [Suspect]
     Active Substance: ALTEPLASE
     Indication: ACUTE MYOCARDIAL INFARCTION
     Route: 040
  2. HEPARIN [Suspect]
     Active Substance: HEPARIN SODIUM
     Indication: ACUTE MYOCARDIAL INFARCTION
     Route: 040
  3. ARGATROBAN. [Suspect]
     Active Substance: ARGATROBAN
     Indication: ACUTE MYOCARDIAL INFARCTION
     Route: 040
  4. ARGATROBAN. [Suspect]
     Active Substance: ARGATROBAN
     Dosage: PER MIN
     Route: 042
  5. ASPIRIN. [Suspect]
     Active Substance: ASPIRIN
     Indication: ACUTE MYOCARDIAL INFARCTION
     Route: 042
  6. ASPIRIN. [Suspect]
     Active Substance: ASPIRIN
     Dosage: 75-200MG
     Route: 048

REACTIONS (1)
  - Post procedural haemorrhage [Fatal]
